FAERS Safety Report 19692320 (Version 3)
Quarter: 2021Q3

REPORT INFORMATION
  Report Type: Report from Study
  Country: US (occurrence: US)
  Receive Date: 20210812
  Receipt Date: 20210831
  Transmission Date: 20211014
  Serious: Yes (Hospitalization)
  Sender: FDA-Public Use
  Company Number: US-KARYOPHARM-2021KPT001029

PATIENT
  Age: 17 Year
  Sex: Male
  Weight: 51.1 kg

DRUGS (9)
  1. PANTOPRAZOLE [Concomitant]
     Active Substance: PANTOPRAZOLE
  2. CYPROHEPTADINE. [Concomitant]
     Active Substance: CYPROHEPTADINE
  3. TYLENOL [Concomitant]
     Active Substance: ACETAMINOPHEN
  4. PEPCID [Concomitant]
     Active Substance: FAMOTIDINE
  5. SELINEXOR [Suspect]
     Active Substance: SELINEXOR
     Indication: GLIOBLASTOMA MULTIFORME
     Dosage: 35 MG/M2, WEEKLY
     Route: 048
     Dates: start: 20210629, end: 20210729
  6. APREPITANT. [Concomitant]
     Active Substance: APREPITANT
  7. ONDANSETRON [Concomitant]
     Active Substance: ONDANSETRON
  8. LORAZEPAM. [Concomitant]
     Active Substance: LORAZEPAM
  9. LEVETIRACETAM. [Concomitant]
     Active Substance: LEVETIRACETAM

REACTIONS (1)
  - Salmonellosis [Recovered/Resolved]

NARRATIVE: CASE EVENT DATE: 20210801
